FAERS Safety Report 8198483-7 (Version None)
Quarter: 2012Q1

REPORT INFORMATION
  Report Type: 
  Country: None (occurrence: None)
  Receive Date: 20120309
  Receipt Date: 20120306
  Transmission Date: 20120608
  Serious: Yes (Death, Hospitalization)
  Sender: FDA-Public Use
  Company Number: PHEH2011US01219

PATIENT
  Sex: Female

DRUGS (3)
  1. CHEMOTHERAPEUTICS [Concomitant]
  2. EXJADE [Suspect]
     Indication: MYELODYSPLASTIC SYNDROME
     Dosage: 2250 MG QD
     Route: 048
     Dates: start: 20110804
  3. EXJADE [Suspect]
     Dosage: 2250 MG, QD
     Route: 048
     Dates: start: 20110804

REACTIONS (13)
  - DIARRHOEA [None]
  - DEPRESSION [None]
  - CONSTIPATION [None]
  - ABDOMINAL DISTENSION [None]
  - INFECTION [None]
  - PULMONARY OEDEMA [None]
  - MYELODYSPLASTIC SYNDROME [None]
  - PYREXIA [None]
  - MALAISE [None]
  - SERUM FERRITIN INCREASED [None]
  - ANORECTAL DISCOMFORT [None]
  - HAEMOGLOBIN DECREASED [None]
  - ABDOMINAL DISCOMFORT [None]
